FAERS Safety Report 8071059-8 (Version None)
Quarter: 2011Q4

REPORT INFORMATION
  Report Type: 
  Country: None (occurrence: None)
  Receive Date: 20111221
  Receipt Date: 20110802
  Transmission Date: 20120403
  Serious: Yes (Hospitalization)
  Sender: FDA-Public Use
  Company Number: PHHY2010US63633

PATIENT
  Age: 25 Year
  Sex: Male
  Weight: 82.6 kg

DRUGS (2)
  1. EXJADE [Suspect]
     Indication: SICKLE CELL ANAEMIA
     Dosage: 2000 MG, DAILY, ORAL
     Route: 048
     Dates: start: 20081023
  2. EXJADE [Suspect]
     Indication: IRON OVERLOAD
     Dosage: 2000 MG, DAILY, ORAL
     Route: 048
     Dates: start: 20081023

REACTIONS (2)
  - SICKLE CELL ANAEMIA WITH CRISIS [None]
  - ABDOMINAL DISCOMFORT [None]
